FAERS Safety Report 21068023 (Version 2)
Quarter: 2022Q3

REPORT INFORMATION
  Report Type: Spontaneous
  Country: US (occurrence: US)
  Receive Date: 20220712
  Receipt Date: 20220804
  Transmission Date: 20221027
  Serious: No
  Sender: FDA-Public Use
  Company Number: US-BRISTOL-MYERS SQUIBB COMPANY-2022-071200

PATIENT
  Age: 65 Year
  Sex: Female

DRUGS (2)
  1. REVLIMID [Suspect]
     Active Substance: LENALIDOMIDE
     Indication: Asthma
     Dosage: DAILY ON DAYS 1-21 EVERY 28 DAYS
     Route: 048
     Dates: start: 20200513
  2. REVLIMID [Suspect]
     Active Substance: LENALIDOMIDE
     Dosage: 1 CAPSULE BY MOUTH DAILY ON DAYS 1-21 EVERY 28 DAYS
     Route: 048
     Dates: start: 20220316

REACTIONS (1)
  - Product dose omission issue [Unknown]
